FAERS Safety Report 18022431 (Version 1)
Quarter: 2020Q3

REPORT INFORMATION
  Report Type: Spontaneous
  Country: US (occurrence: US)
  Receive Date: 20200714
  Receipt Date: 20200714
  Transmission Date: 20201103
  Serious: No
  Sender: FDA-Public Use
  Company Number: US-BAYER-2020-141400

PATIENT
  Sex: Female

DRUGS (1)
  1. NATAZIA [Suspect]
     Active Substance: DIENOGEST\ESTRADIOL VALERATE
     Route: 048

REACTIONS (2)
  - Product confusion [None]
  - Metrorrhagia [None]
